FAERS Safety Report 9206214 (Version 1)
Quarter: 2013Q2

REPORT INFORMATION
  Report Type: Spontaneous
  Country: US (occurrence: US)
  Receive Date: 20130403
  Receipt Date: 20130403
  Transmission Date: 20140414
  Serious: No
  Sender: FDA-Public Use
  Company Number: US-PFIZER INC-2013104739

PATIENT
  Age: 64 Year
  Sex: Female
  Weight: 65.76 kg

DRUGS (7)
  1. LYRICA [Suspect]
     Indication: FIBROMYALGIA
     Dosage: 75 MG, UNK
     Route: 048
     Dates: start: 201110, end: 2013
  2. LYRICA [Suspect]
     Dosage: 300 MG, 2X/DAY
     Route: 048
     Dates: start: 2013
  3. WELCHOL [Concomitant]
     Indication: DIARRHOEA
     Dosage: UNK
  4. CHLORZOXAZONE [Concomitant]
     Indication: MUSCLE RELAXANT THERAPY
     Dosage: UNK
  5. REMERON [Concomitant]
     Dosage: UNK
  6. XANAX ER [Concomitant]
     Dosage: UNK
  7. NAPROXEN [Concomitant]
     Dosage: UNK

REACTIONS (7)
  - Night sweats [Not Recovered/Not Resolved]
  - Menopausal disorder [Not Recovered/Not Resolved]
  - Weight increased [Not Recovered/Not Resolved]
  - Back pain [Not Recovered/Not Resolved]
  - Blood glucose abnormal [Not Recovered/Not Resolved]
  - Balance disorder [Not Recovered/Not Resolved]
  - Dizziness [Not Recovered/Not Resolved]
